FAERS Safety Report 16863956 (Version 3)
Quarter: 2020Q3

REPORT INFORMATION
  Report Type: Report from Study
  Country: JP (occurrence: JP)
  Receive Date: 20190927
  Receipt Date: 20200928
  Transmission Date: 20201102
  Serious: Yes (Life-Threatening, Hospitalization)
  Sender: FDA-Public Use
  Company Number: JP-BIOCODEX SA-201901208

PATIENT

DRUGS (39)
  1. DIACOMIT [Suspect]
     Active Substance: STIRIPENTOL
     Dosage: 1750 MG, QD
     Route: 048
     Dates: start: 20170523, end: 20171002
  2. MYSTAN [Suspect]
     Active Substance: CLOBAZAM
     Indication: SEVERE MYOCLONIC EPILEPSY OF INFANCY
     Dosage: 15 MG, QD
     Route: 048
     Dates: end: 20150509
  3. MYSTAN [Suspect]
     Active Substance: CLOBAZAM
     Dosage: 12 MG, QD
     Route: 048
     Dates: start: 20170704
  4. CORTRIL [Suspect]
     Active Substance: HYDROCORTISONE
     Dosage: 50 MG, QD
     Route: 048
     Dates: start: 20151029, end: 20160314
  5. CORTRIL [Suspect]
     Active Substance: HYDROCORTISONE
     Dosage: 30 MG, QD
     Route: 048
     Dates: start: 20160315
  6. MIDAZOLAM. [Concomitant]
     Active Substance: MIDAZOLAM
     Indication: SEVERE MYOCLONIC EPILEPSY OF INFANCY
     Dosage: 0.06 MG/KG/H
     Route: 051
     Dates: start: 20150513, end: 20150520
  7. MIDAZOLAM. [Concomitant]
     Active Substance: MIDAZOLAM
     Dosage: 0.375 MG/KG/H (SUBSEQUENT GRADUAL DOSE REDUCTION)
     Route: 051
     Dates: start: 20160220, end: 20160224
  8. MIDAZOLAM. [Concomitant]
     Active Substance: MIDAZOLAM
     Dosage: 0.05 MG/KG/H
     Route: 051
     Dates: start: 20160503, end: 20160505
  9. MIDAZOLAM. [Concomitant]
     Active Substance: MIDAZOLAM
     Dosage: 0.05 MG/KG/H
     Route: 051
     Dates: start: 20161116, end: 20161121
  10. DIACOMIT [Suspect]
     Active Substance: STIRIPENTOL
     Dosage: 2000 MG, QD
     Route: 048
     Dates: start: 20160315, end: 20170522
  11. DIACOMIT [Suspect]
     Active Substance: STIRIPENTOL
     Dosage: 1000 MG, QD
     Route: 048
     Dates: start: 20150527, end: 20150602
  12. DIACOMIT [Suspect]
     Active Substance: STIRIPENTOL
     Dosage: 1500 MG, QD
     Route: 048
     Dates: start: 20171003
  13. SODIUM VALPROATE [Suspect]
     Active Substance: VALPROATE SODIUM
     Dosage: 800 MG, QD
     Route: 048
     Dates: start: 20150609, end: 20150614
  14. SODIUM VALPROATE [Suspect]
     Active Substance: VALPROATE SODIUM
     Dosage: 600 MG, QD
     Route: 048
     Dates: start: 20150615, end: 20151006
  15. SODIUM VALPROATE [Suspect]
     Active Substance: VALPROATE SODIUM
     Dosage: 500 MG, QD
     Route: 048
     Dates: start: 20151007, end: 20151026
  16. MIDAZOLAM. [Concomitant]
     Active Substance: MIDAZOLAM
     Dosage: 0.05 MG/KG/H
     Route: 051
     Dates: start: 20160613, end: 20160615
  17. MIDAZOLAM. [Concomitant]
     Active Substance: MIDAZOLAM
     Dosage: 0.05 MG/KG/H
     Route: 051
     Dates: start: 20170429, end: 20170502
  18. MIDAZOLAM. [Concomitant]
     Active Substance: MIDAZOLAM
     Dosage: 0.14 MG/KG/H
     Route: 051
     Dates: start: 20180410, end: 20180412
  19. TOPIRAMATE. [Concomitant]
     Active Substance: TOPIRAMATE
     Dosage: 50 MG, QD
     Route: 048
     Dates: start: 20170317
  20. DIACOMIT [Suspect]
     Active Substance: STIRIPENTOL
     Dosage: 1500 MG, QD
     Route: 048
     Dates: start: 20150603, end: 20151117
  21. SODIUM VALPROATE [Suspect]
     Active Substance: VALPROATE SODIUM
     Dosage: 700 MG, QD
     Route: 048
     Dates: start: 20151027, end: 20160509
  22. MYSTAN [Suspect]
     Active Substance: CLOBAZAM
     Dosage: 15 MG, QD
     Route: 048
     Dates: start: 20161122, end: 20170703
  23. MIDAZOLAM. [Concomitant]
     Active Substance: MIDAZOLAM
     Dosage: 0.05 MG/KG/H
     Route: 051
     Dates: start: 20170209, end: 20170212
  24. MIDAZOLAM. [Concomitant]
     Active Substance: MIDAZOLAM
     Dosage: 0.05 MG/KG/H
     Route: 051
     Dates: start: 20170314, end: 20170318
  25. SODIUM VALPROATE [Suspect]
     Active Substance: VALPROATE SODIUM
     Indication: SEVERE MYOCLONIC EPILEPSY OF INFANCY
     Dosage: 1000 MG, QD
     Route: 048
     Dates: end: 20150608
  26. MYSTAN [Suspect]
     Active Substance: CLOBAZAM
     Dosage: 20 MG, QD
     Route: 048
     Dates: start: 20150510, end: 20161121
  27. MIDAZOLAM. [Concomitant]
     Active Substance: MIDAZOLAM
     Dosage: 0.05 MG/KG/H
     Route: 051
     Dates: start: 20160822, end: 20160920
  28. TOPIRAMATE. [Concomitant]
     Active Substance: TOPIRAMATE
     Indication: SEVERE MYOCLONIC EPILEPSY OF INFANCY
     Dosage: 100 MG, QD
     Route: 048
     Dates: start: 2015, end: 20150513
  29. PERAMIVIR HYDRATE [Concomitant]
     Indication: PRODUCT USED FOR UNKNOWN INDICATION
     Route: 051
     Dates: start: 20180204
  30. SODIUM VALPROATE [Suspect]
     Active Substance: VALPROATE SODIUM
     Dosage: 600 MG, QD
     Route: 048
     Dates: start: 20160510, end: 20170116
  31. MIDAZOLAM. [Concomitant]
     Active Substance: MIDAZOLAM
     Dosage: 0.14 MG/KG/H
     Route: 051
     Dates: start: 20180204, end: 20180208
  32. CEFOTAXIME SODIUM [Concomitant]
     Active Substance: CEFOTAXIME SODIUM
     Indication: PRODUCT USED FOR UNKNOWN INDICATION
     Dosage: 6 G, QD
     Route: 051
     Dates: start: 20180204, end: 20180213
  33. MIDAZOLAM. [Concomitant]
     Active Substance: MIDAZOLAM
     Dosage: 0.05 MG/KG/H
     Route: 051
     Dates: start: 20170217, end: 20170222
  34. DIACOMIT [Suspect]
     Active Substance: STIRIPENTOL
     Indication: SEVERE MYOCLONIC EPILEPSY OF INFANCY
     Dosage: 500 MG, QD
     Route: 048
     Dates: start: 20150521, end: 20150526
  35. DIACOMIT [Suspect]
     Active Substance: STIRIPENTOL
     Dosage: 1750 MG, QD
     Route: 048
     Dates: start: 20151118, end: 20160314
  36. SODIUM VALPROATE [Suspect]
     Active Substance: VALPROATE SODIUM
     Dosage: 550 MG, QD
     Route: 048
     Dates: start: 20170117
  37. CORTRIL [Suspect]
     Active Substance: HYDROCORTISONE
     Indication: PRODUCT USED FOR UNKNOWN INDICATION
     Dosage: 100 MG, QD
     Route: 048
     Dates: start: 20151021, end: 20151028
  38. MIDAZOLAM. [Concomitant]
     Active Substance: MIDAZOLAM
     Dosage: 0.06 MG/KG/H
     Route: 051
     Dates: start: 20151013, end: 20151014
  39. MIDAZOLAM. [Concomitant]
     Active Substance: MIDAZOLAM
     Dosage: 0.05 MG/KG/H
     Route: 051
     Dates: start: 20170418, end: 20170419

REACTIONS (1)
  - Pneumonia aspiration [Recovered/Resolved]

NARRATIVE: CASE EVENT DATE: 20180204
